FAERS Safety Report 14292654 (Version 4)
Quarter: 2018Q1

REPORT INFORMATION
  Report Type: Spontaneous
  Country: AU (occurrence: AU)
  Receive Date: 20171215
  Receipt Date: 20180111
  Transmission Date: 20180509
  Serious: Yes (Death, Hospitalization, Other)
  Sender: FDA-Public Use
  Company Number: AU-ROCHE-2037439

PATIENT
  Age: 62 Year
  Sex: Female
  Weight: 62 kg

DRUGS (7)
  1. ESOMEPRAZOLE [Concomitant]
     Active Substance: ESOMEPRAZOLE
     Route: 065
  2. FENTANYL. [Concomitant]
     Active Substance: FENTANYL
     Indication: PAIN
     Route: 061
  3. FENTANYL. [Concomitant]
     Active Substance: FENTANYL
     Dosage: PRN
     Route: 048
  4. PERJETA [Suspect]
     Active Substance: PERTUZUMAB
     Indication: OVARIAN CANCER
     Dosage: LOADING DOSE
     Route: 042
     Dates: start: 20171201
  5. ONDANSETRON [Concomitant]
     Active Substance: ONDANSETRON
     Indication: NAUSEA
     Dosage: PRN?4-8 MG
     Route: 065
  6. PERJETA [Suspect]
     Active Substance: PERTUZUMAB
     Dosage: MAINTANACE DOSE
     Route: 042
  7. AMITRIPTYLINE [Concomitant]
     Active Substance: AMITRIPTYLINE
     Indication: PAIN
     Dosage: NOCTE
     Route: 048

REACTIONS (7)
  - Dehydration [Unknown]
  - Diarrhoea [Recovered/Resolved]
  - Ill-defined disorder [Unknown]
  - Respiratory distress [Fatal]
  - Intentional product use issue [Unknown]
  - Off label use [Unknown]
  - Vomiting [Unknown]

NARRATIVE: CASE EVENT DATE: 20171202
